FAERS Safety Report 16965912 (Version 1)
Quarter: 2019Q4

REPORT INFORMATION
  Report Type: Spontaneous
  Country: US (occurrence: US)
  Receive Date: 20191028
  Receipt Date: 20191028
  Transmission Date: 20200122
  Serious: No
  Sender: FDA-Public Use
  Company Number: US-PFIZER INC-2019459344

PATIENT
  Age: 88 Year

DRUGS (5)
  1. CIPROFLOXACIN. [Suspect]
     Active Substance: CIPROFLOXACIN
     Dosage: UNK
  2. IODINE. [Suspect]
     Active Substance: IODINE
     Dosage: UNK
  3. MACROBID [CLARITHROMYCIN] [Suspect]
     Active Substance: CLARITHROMYCIN
     Dosage: UNK
  4. LASIX [Suspect]
     Active Substance: FUROSEMIDE
     Dosage: UNK
  5. VACCINIUM ANGUSTIFOLIUM VAR. MYRTILLOIDES [Suspect]
     Active Substance: HERBALS
     Dosage: UNK

REACTIONS (1)
  - Drug hypersensitivity [Unknown]
